FAERS Safety Report 8606434-3 (Version None)
Quarter: 2012Q3

REPORT INFORMATION
  Report Type: 
  Country: None (occurrence: None)
  Receive Date: 20120820
  Receipt Date: 20120813
  Transmission Date: 20120928
  Serious: Yes (Disabling, Other)
  Sender: FDA-Public Use
  Company Number: LB-ASTRAZENECA-2012SE57189

PATIENT
  Sex: Male
  Weight: 95 kg

DRUGS (1)
  1. PLENDIL [Suspect]
     Indication: HYPERTENSION
     Route: 048
     Dates: start: 20060101, end: 20070101

REACTIONS (7)
  - HYPOKALAEMIA [None]
  - MUSCULAR WEAKNESS [None]
  - ASTHENIA [None]
  - POLYURIA [None]
  - ARRHYTHMIA [None]
  - NEPHROPATHY [None]
  - ATRIAL FIBRILLATION [None]
